FAERS Safety Report 26052154 (Version 1)
Quarter: 2025Q4

REPORT INFORMATION
  Report Type: Spontaneous
  Country: EU (occurrence: EU)
  Receive Date: 20251117
  Receipt Date: 20251117
  Transmission Date: 20260118
  Serious: Yes (Other)
  Sender: SAMSUNG BIOEPIS
  Company Number: EU-SAMSUNG BIOEPIS-SB-2025-37868

PATIENT
  Age: 69 Year
  Sex: Female

DRUGS (2)
  1. RANIBIZUMAB [Suspect]
     Active Substance: RANIBIZUMAB
     Indication: Macular oedema
  2. RANIBIZUMAB [Suspect]
     Active Substance: RANIBIZUMAB
     Indication: Retinal vein occlusion

REACTIONS (4)
  - Cystoid macular oedema [Unknown]
  - Visual impairment [Unknown]
  - Drug ineffective [Unknown]
  - Product use issue [Unknown]
